FAERS Safety Report 8008597-X (Version None)
Quarter: 2011Q4

REPORT INFORMATION
  Report Type: 
  Country: None (occurrence: None)
  Receive Date: 20111222
  Receipt Date: 20111207
  Transmission Date: 20120403
  Serious: Yes (Hospitalization, Other)
  Sender: FDA-Public Use
  Company Number: CL-364-2011

PATIENT
  Age: 60 Year
  Sex: Male

DRUGS (2)
  1. METRONIDAZOLE [Suspect]
     Indication: ANTIBIOTIC THERAPY
  2. IMIPENEM [Suspect]
     Indication: ANTIBIOTIC THERAPY

REACTIONS (2)
  - PNEUMONIA [None]
  - RESPIRATORY FAILURE [None]
